FAERS Safety Report 19385804 (Version 1)
Quarter: 2021Q2

REPORT INFORMATION
  Report Type: Spontaneous
  Country: US (occurrence: US)
  Receive Date: 20210607
  Receipt Date: 20210607
  Transmission Date: 20210717
  Serious: No
  Sender: FDA-Public Use
  Company Number: US-PERRIGO-20US014820

PATIENT
  Age: 41 Year
  Sex: Male
  Weight: 88.44 kg

DRUGS (2)
  1. MINOXIDIL. [Suspect]
     Active Substance: MINOXIDIL
     Indication: ALOPECIA
     Dosage: 1/2 CAPFUL, BID
     Route: 061
     Dates: start: 202005, end: 202009
  2. MINOXIDIL. [Suspect]
     Active Substance: MINOXIDIL
     Dosage: 1/2 CAPFUL, BID
     Route: 061
     Dates: start: 20201012

REACTIONS (4)
  - Application site pain [Unknown]
  - Application site irritation [Unknown]
  - Application site erythema [Unknown]
  - Application site exfoliation [Unknown]

NARRATIVE: CASE EVENT DATE: 202008
